FAERS Safety Report 10197048 (Version 2)
Quarter: 2014Q2

REPORT INFORMATION
  Report Type: Spontaneous
  Country: JP (occurrence: JP)
  Receive Date: 20140527
  Receipt Date: 20140620
  Transmission Date: 20141212
  Serious: Yes (Life-Threatening)
  Sender: FDA-Public Use
  Company Number: JP-MALLINCKRODT-T201402289

PATIENT
  Age: 46 Year
  Sex: Female
  Weight: 63.1 kg

DRUGS (26)
  1. METHADONE [Suspect]
     Indication: CANCER PAIN
     Dosage: 5 MG, (5 MG DAILY DOSE)
     Route: 048
     Dates: start: 20131209, end: 20131209
  2. METHADONE [Suspect]
     Dosage: 10 MG, (30 MG DAILY DOSE)
     Route: 048
     Dates: start: 20131210, end: 20131215
  3. METHADONE [Suspect]
     Dosage: 15 MG, (45 MG DAILY DOSE)
     Route: 048
     Dates: start: 20131216, end: 20131222
  4. METHADONE [Suspect]
     Dosage: 20 MG, (60 MG DAILY DOSE)
     Route: 048
     Dates: start: 20131223, end: 20131226
  5. MORPHINE HYDROCHLORIDE [Concomitant]
     Dosage: 30 MG, PRN
     Route: 051
     Dates: start: 20131208, end: 20131215
  6. FENTANYL [Concomitant]
     Dosage: 0.5 MG, PRN
     Route: 051
     Dates: start: 20131223
  7. FEMARA [Concomitant]
     Dosage: 2.5 MG, UNK
     Route: 048
     Dates: end: 20131231
  8. LYRICA [Concomitant]
     Dosage: 300 MG, UNK
     Route: 048
     Dates: end: 20131217
  9. LYRICA [Concomitant]
     Dosage: 375 MG, UNK
     Route: 048
     Dates: start: 20131218, end: 20131220
  10. LYRICA [Concomitant]
     Dosage: 450 MG, UNK
     Route: 048
     Dates: start: 20131221, end: 20131226
  11. PRIMPERAN [Concomitant]
     Dosage: 10 MG, UNK
     Route: 048
     Dates: end: 20131218
  12. TRAVELMIN [Concomitant]
     Dosage: 2 DF, UNK
     Route: 048
     Dates: end: 20131218
  13. MAGMITT [Concomitant]
     Dosage: 660 MG, UNK
     Route: 048
     Dates: end: 20131226
  14. TRAMAL [Concomitant]
     Dosage: 100 MG, UNK
     Route: 048
     Dates: end: 20131226
  15. CELECOX [Concomitant]
     Dosage: 200 MG, UNK
     Route: 048
     Dates: end: 20131219
  16. CELECOX [Concomitant]
     Dosage: 400 MG, UNK
     Route: 048
     Dates: start: 20131220, end: 20131226
  17. NAIXAN                             /00256201/ [Concomitant]
     Dosage: 300 MG, UNK
     Route: 048
     Dates: end: 20131224
  18. CYMBALTA [Concomitant]
     Dosage: 20 MG, UNK
     Route: 048
     Dates: end: 20131213
  19. CYMBALTA [Concomitant]
     Dosage: 40 MG, UNK
     Route: 048
     Dates: start: 20131214, end: 20131219
  20. CYMBALTA [Concomitant]
     Dosage: 60 MG, UNK
     Route: 048
     Dates: start: 20131220, end: 20131226
  21. RINDERON                           /00008501/ [Concomitant]
     Dosage: 1 MG, UNK
     Route: 048
     Dates: start: 20131219, end: 20131224
  22. CRAVIT [Concomitant]
     Dosage: 500 MG, UNK
     Route: 048
     Dates: end: 20131217
  23. KETALAR [Concomitant]
     Dosage: 50-210 MG
     Route: 051
     Dates: start: 20131221, end: 20131226
  24. XYLOCAINE [Concomitant]
     Dosage: 300-1350 MG
     Route: 051
     Dates: start: 20131221, end: 20131226
  25. OXYFAST [Concomitant]
     Dosage: 20-40 MG
     Route: 051
     Dates: start: 20131218, end: 20131221
  26. FENTANYL [Concomitant]
     Dosage: 1.0-3.0 MG
     Route: 051
     Dates: start: 20131221, end: 20131226

REACTIONS (7)
  - Dyspnoea [Not Recovered/Not Resolved]
  - Convulsion [Not Recovered/Not Resolved]
  - Delirium [Not Recovered/Not Resolved]
  - Somnolence [Not Recovered/Not Resolved]
  - Pneumonia aspiration [Not Recovered/Not Resolved]
  - Hepatic enzyme increased [Unknown]
  - Soliloquy [Recovering/Resolving]
